FAERS Safety Report 8960390 (Version 1)
Quarter: 2012Q4

REPORT INFORMATION
  Report Type: 
  Country: US (occurrence: US)
  Receive Date: 20121211
  Receipt Date: 20121211
  Transmission Date: 20130627
  Serious: Yes (Other)
  Sender: FDA-Public Use
  Company Number: US-ARROW-2012-21544

PATIENT
  Age: 57 Year
  Sex: Female

DRUGS (6)
  1. TAMOXIFEN CITRATE [Suspect]
     Indication: BREAST CANCER STAGE II
     Dosage: UNK, unknown
     Route: 065
  2. LETROZOLE [Suspect]
     Dosage: UNK, unknown
     Route: 065
  3. DOXORUBICIN [Suspect]
     Indication: BREAST CANCER STAGE II
     Dosage: 75 mg/m2, unknown
     Route: 065
  4. CYCLOPHOSPHAMIDE [Concomitant]
     Indication: BREAST CANCER STAGE II
     Dosage: UNK, unknown
     Route: 065
  5. METHOTREXATE [Concomitant]
     Indication: BREAST CANCER STAGE II
     Dosage: UNK, unknown
     Route: 065
  6. FLUOROURACIL [Concomitant]
     Indication: BREAST CANCER STAGE II
     Dosage: UNK, unknown
     Route: 065

REACTIONS (2)
  - Cardiomyopathy [Recovered/Resolved]
  - Cardiac failure [Recovered/Resolved]
